FAERS Safety Report 7716666-4 (Version None)
Quarter: 2011Q3

REPORT INFORMATION
  Report Type: 
  Country: None (occurrence: None)
  Receive Date: 20110829
  Receipt Date: 20110314
  Transmission Date: 20111222
  Serious: No
  Sender: FDA-Public Use
  Company Number: US-ASTRAZENECA-2011SE14296

PATIENT
  Age: 55 Year
  Sex: Male

DRUGS (2)
  1. IRESSA [Suspect]
     Route: 048
     Dates: start: 20071001
  2. ALIMTA [Suspect]
     Indication: CHEMOTHERAPY
     Route: 042

REACTIONS (2)
  - CONSTIPATION [None]
  - FATIGUE [None]
